FAERS Safety Report 6162645-0 (Version None)
Quarter: 2009Q2

REPORT INFORMATION
  Report Type: 
  Country: None (occurrence: None)
  Receive Date: 20090421
  Receipt Date: 20080520
  Transmission Date: 20091009
  Serious: No
  Sender: FDA-Public Use
  Company Number: US-ASTRAZENECA-2008UW10315

PATIENT
  Age: 71 Year
  Sex: Male
  Weight: 72.6 kg

DRUGS (5)
  1. CASODEX [Suspect]
     Indication: PROSTATE CANCER
     Route: 048
     Dates: start: 20080513
  2. COLANDINE [Concomitant]
  3. COTRIM [Concomitant]
     Dosage: 400MG/80MG
  4. AMLODIPINE [Concomitant]
  5. KETOCONAZOLE [Concomitant]

REACTIONS (2)
  - DYSPHONIA [None]
  - OROPHARYNGEAL PAIN [None]
